FAERS Safety Report 16471661 (Version 8)
Quarter: 2020Q3

REPORT INFORMATION
  Report Type: Other
  Country: ES (occurrence: ES)
  Receive Date: 20190624
  Receipt Date: 20200622
  Transmission Date: 20201105
  Serious: Yes (Hospitalization, Other)
  Sender: FDA-Public Use
  Company Number: ES-CELLTRION INC.-2019ES020120

PATIENT

DRUGS (24)
  1. BENDAMUSTINE [Suspect]
     Active Substance: BENDAMUSTINE
     Indication: DIFFUSE LARGE B-CELL LYMPHOMA
     Dosage: 160 MG, NEXT DOSE 12 FEB 2019, THIRD CYCLE ADMINISTERED ON 24 APR 2019 WITH BENDAMUSTIN AT 70% DOSE
     Route: 042
     Dates: start: 20190211, end: 20190725
  2. RITUXIMAB (UNKNOWN) [Suspect]
     Active Substance: RITUXIMAB
     Dosage: 680 MG, UNK (SECOND CYCLE)
     Route: 042
     Dates: start: 20190327
  3. POLATUZUMAB VEDOTIN. [Suspect]
     Active Substance: POLATUZUMAB VEDOTIN
     Dosage: 140 MG, UNK (THIRD CYCLE)
     Route: 042
     Dates: start: 20190424
  4. BENDAMUSTINE [Suspect]
     Active Substance: BENDAMUSTINE
     Dosage: 160 MG, UNK (THIRD CYCLE ADMINISTERED ON 25/APR/2019 WITH BENDAMUSTIN AT 70% DOSE)
     Route: 042
     Dates: start: 20190425
  5. AMLODIPINE [Concomitant]
     Active Substance: AMLODIPINE BESYLATE
     Dosage: 5 MG, UNK
     Route: 048
  6. POLATUZUMAB VEDOTIN. [Suspect]
     Active Substance: POLATUZUMAB VEDOTIN
     Dosage: 140 MG, EVERY 21 DAYS, SECOND CYCLE ADMINISTERED ON 27/MAR/2019; THIRD CYCLE ADMINISTERED ON 24/APR/
     Route: 042
     Dates: start: 20190211, end: 20190725
  7. POLATUZUMAB VEDOTIN. [Suspect]
     Active Substance: POLATUZUMAB VEDOTIN
     Dosage: 140 MG, UNK (FIRST DOSE);  SECOND CYCLE ADMINISTERED ON 27/MAR/2019, THIRD CYCLE ADMINISTERED ON 24/
     Route: 042
     Dates: start: 20190211, end: 20190725
  8. POLATUZUMAB VEDOTIN. [Suspect]
     Active Substance: POLATUZUMAB VEDOTIN
     Dosage: 140 MG, UNK (SECOND CYCLE)
     Route: 042
     Dates: start: 20190327
  9. PENTAMIDINE [Concomitant]
     Active Substance: PENTAMIDINE
     Indication: PRODUCT USED FOR UNKNOWN INDICATION
     Dosage: INHALATION
     Route: 065
  10. RITUXIMAB (UNKNOWN) [Suspect]
     Active Substance: RITUXIMAB
     Indication: DIFFUSE LARGE B-CELL LYMPHOMA
     Dosage: 680 MG, EVERY 21 DAYS; SECOND CYCLE ADMINISTERED ON 27/MAR/2019; THIRD CYCLE ADMINISTERED ON 24/APR/
     Route: 041
     Dates: start: 20190211, end: 20190725
  11. POLATUZUMAB VEDOTIN. [Suspect]
     Active Substance: POLATUZUMAB VEDOTIN
     Dosage: 140 MG, UNK (THIRD CYCLE)
     Route: 042
     Dates: start: 20190424
  12. BENDAMUSTINE [Suspect]
     Active Substance: BENDAMUSTINE
     Dosage: THIRD CYCLE ADMINISTERED ON 24/APR/2019 WITH BENDAMUSTIN AT 70% DOSE
     Route: 042
     Dates: start: 20190211, end: 20190627
  13. PENTAMIDINE [Concomitant]
     Active Substance: PENTAMIDINE
     Dosage: UNK
     Route: 055
  14. POLATUZUMAB VEDOTIN. [Suspect]
     Active Substance: POLATUZUMAB VEDOTIN
     Dosage: 140 MG, UNK (SECOND CYCLE)
     Route: 042
     Dates: start: 20190327
  15. POLATUZUMAB VEDOTIN. [Suspect]
     Active Substance: POLATUZUMAB VEDOTIN
     Dosage: UNK
  16. ATORVASTATIN [Concomitant]
     Active Substance: ATORVASTATIN
     Indication: PRODUCT USED FOR UNKNOWN INDICATION
     Dosage: UNK
  17. RITUXIMAB (UNKNOWN) [Suspect]
     Active Substance: RITUXIMAB
     Dosage: 680 MG, UNK (THIRD CYCLE)
     Route: 042
     Dates: start: 20190425
  18. POLATUZUMAB VEDOTIN. [Suspect]
     Active Substance: POLATUZUMAB VEDOTIN
     Indication: DIFFUSE LARGE B-CELL LYMPHOMA
     Dosage: 140 MG, EVERY 21 DAYS, SECOND CYCLE ADMINISTERED ON 27/MAR/2019; THIRD CYCLE ADMINISTERED ON 24/APR/
     Route: 042
     Dates: start: 20190211, end: 20190725
  19. OMEPRAZOLE. [Concomitant]
     Active Substance: OMEPRAZOLE
     Indication: PRODUCT USED FOR UNKNOWN INDICATION
     Dosage: 20 MG, UNK
     Route: 048
  20. RITUXIMAB (UNKNOWN) [Suspect]
     Active Substance: RITUXIMAB
     Dosage: 680 MG, EVERY 21 DAYS; SECOND CYCLE ADMINISTERED ON 27/MAR/2019; THIRD CYCLE ADMINISTERED ON 24/APR/
     Route: 041
     Dates: start: 20190211, end: 20190725
  21. PARACETAMOL [Concomitant]
     Active Substance: ACETAMINOPHEN
     Indication: PREMEDICATION
     Dosage: 1000 MG, UNK
     Route: 042
     Dates: start: 20190211, end: 20190211
  22. RITUXIMAB (UNKNOWN) [Suspect]
     Active Substance: RITUXIMAB
     Dosage: 680 MG, UNK (FIRST DOSE)
     Route: 042
     Dates: start: 20190211
  23. POLATUZUMAB VEDOTIN. [Suspect]
     Active Substance: POLATUZUMAB VEDOTIN
     Dosage: 140 MG, UNK (FIRST DOSE); SECOND CYCLE ADMINISTERED ON 27/MAR/2019, THIRD CYCLE ADMINISTERED ON 24/A
     Route: 042
     Dates: start: 20190211, end: 20190725
  24. METILPREDNISOLONE [Concomitant]
     Active Substance: METHYLPREDNISOLONE
     Indication: PREMEDICATION
     Dosage: 40 MG, UNK
     Route: 042
     Dates: start: 20190211, end: 20190211

REACTIONS (6)
  - Pancytopenia [Not Recovered/Not Resolved]
  - Agranulocytosis [Recovered/Resolved]
  - Infusion site extravasation [Recovered/Resolved]
  - Pancytopenia [Recovered/Resolved]
  - Underdose [Unknown]
  - Lung consolidation [Unknown]

NARRATIVE: CASE EVENT DATE: 20190211
